FAERS Safety Report 13933604 (Version 7)
Quarter: 2019Q1

REPORT INFORMATION
  Report Type: Spontaneous
  Country: US (occurrence: US)
  Receive Date: 20170904
  Receipt Date: 20190315
  Transmission Date: 20190417
  Serious: Yes (Hospitalization, Other)
  Sender: FDA-Public Use
  Company Number: US-DSJP-DSU-2017-133919

PATIENT

DRUGS (3)
  1. BENICAR HCT [Suspect]
     Active Substance: HYDROCHLOROTHIAZIDE\OLMESARTAN MEDOXOMIL
     Indication: PRODUCT USED FOR UNKNOWN INDICATION
     Dosage: 40/25 MG, BID
     Route: 048
     Dates: start: 2012, end: 20160106
  2. BENICAR [Suspect]
     Active Substance: OLMESARTAN MEDOXOMIL
     Dosage: UNK
     Dates: start: 20120214, end: 20160106
  3. BENICAR HCT [Suspect]
     Active Substance: HYDROCHLOROTHIAZIDE\OLMESARTAN MEDOXOMIL
     Dosage: 20/12.5 MG, BID
     Route: 048
     Dates: start: 20120214, end: 20120821

REACTIONS (17)
  - Irritable bowel syndrome [Not Recovered/Not Resolved]
  - Obesity [Unknown]
  - Leukocytosis [Unknown]
  - Umbilical hernia [Recovered/Resolved]
  - Pain [Unknown]
  - Anxiety [Unknown]
  - Bacterial infection [Unknown]
  - Gastrooesophageal reflux disease [Not Recovered/Not Resolved]
  - Ileus [Recovered/Resolved]
  - Bronchitis [Not Recovered/Not Resolved]
  - Haemorrhoids [Not Recovered/Not Resolved]
  - Sleep apnoea syndrome [Unknown]
  - Appendicitis [Recovered/Resolved]
  - Sprue-like enteropathy [Recovered/Resolved]
  - Hypotension [Unknown]
  - Biliary dyskinesia [Recovered/Resolved]
  - Cholecystitis chronic [Recovered/Resolved]

NARRATIVE: CASE EVENT DATE: 201202
